FAERS Safety Report 5401980-8 (Version None)
Quarter: 2007Q3

REPORT INFORMATION
  Report Type: 
  Country: None (occurrence: None)
  Receive Date: 20070727
  Receipt Date: 20070717
  Transmission Date: 20080115
  Serious: Yes (Death, Hospitalization)
  Sender: FDA-Public Use
  Company Number: 2007AL000070

PATIENT
  Age: 84 Year

DRUGS (2)
  1. DICLOFENAC SODIUM [Suspect]
     Indication: BACK PAIN
     Dosage: 50 MG;TID;PO
     Route: 048
     Dates: start: 20061201, end: 20061205
  2. CEPHALEXIN [Concomitant]

REACTIONS (5)
  - CARDIAC ARREST [None]
  - DUODENAL ULCER HAEMORRHAGE [None]
  - HAEMATEMESIS [None]
  - HYPONATRAEMIA [None]
  - HYPOVOLAEMIA [None]
